FAERS Safety Report 9708481 (Version 2)
Quarter: 2013Q4

REPORT INFORMATION
  Report Type: Spontaneous
  Country: US (occurrence: US)
  Receive Date: 20131125
  Receipt Date: 20131203
  Transmission Date: 20140711
  Serious: Yes (Hospitalization, Other)
  Sender: FDA-Public Use
  Company Number: US-ASTRAZENECA-2013SE85199

PATIENT
  Age: 48 Year
  Sex: 0
  Weight: 86.2 kg

DRUGS (17)
  1. SEROQUEL [Suspect]
     Indication: MENTAL DISORDER
     Dosage: UNKNOWN
     Route: 048
  2. SEROQUEL [Suspect]
     Indication: AGGRESSION
     Dosage: UNKNOWN
     Route: 048
  3. SEROQUEL [Suspect]
     Indication: MENTAL DISORDER
     Route: 048
     Dates: start: 2009, end: 2012
  4. SEROQUEL [Suspect]
     Indication: AGGRESSION
     Route: 048
     Dates: start: 2009, end: 2012
  5. LISINOPRIL [Suspect]
     Indication: BLOOD PRESSURE ABNORMAL
     Route: 048
  6. RISPERIDONE [Suspect]
     Route: 065
  7. MEDICAL OTHER UNSPECIFIED MEDICATIONS [Concomitant]
  8. LYRICA [Concomitant]
     Indication: NERVE INJURY
     Dosage: DAILY
  9. LYRICA [Concomitant]
     Indication: NEUROPATHY PERIPHERAL
     Dosage: DAILY
  10. VICODEN [Concomitant]
     Indication: PAIN IN EXTREMITY
  11. VICODEN [Concomitant]
     Indication: HEADACHE
  12. HYDROXINE [Concomitant]
  13. METFORMIN [Concomitant]
     Indication: DIABETES MELLITUS
  14. XANAX [Concomitant]
     Indication: GASTROOESOPHAGEAL REFLUX DISEASE
  15. LUNESTA [Concomitant]
     Indication: SLEEP DISORDER
  16. ZOFRAN [Concomitant]
     Indication: VOMITING
  17. MELATONIN [Concomitant]
     Indication: SLEEP DISORDER

REACTIONS (37)
  - Malaise [Unknown]
  - Pain [Unknown]
  - Nausea [Unknown]
  - Insomnia [Unknown]
  - Vomiting [Unknown]
  - Blood glucose increased [Unknown]
  - Convulsion [Unknown]
  - Chest injury [Unknown]
  - Face injury [Unknown]
  - Gastrointestinal injury [Unknown]
  - Impaired healing [Unknown]
  - Haematemesis [Unknown]
  - Loss of consciousness [Unknown]
  - Hernia [Unknown]
  - Quality of life decreased [Unknown]
  - Post procedural complication [Unknown]
  - Drug dose omission [Unknown]
  - Weight increased [Unknown]
  - Type 1 diabetes mellitus [Unknown]
  - Hypertension [Not Recovered/Not Resolved]
  - Anger [Unknown]
  - Infection [Unknown]
  - Intentional drug misuse [Unknown]
  - Neuropathy peripheral [Not Recovered/Not Resolved]
  - Peripheral coldness [Unknown]
  - Weight fluctuation [Unknown]
  - Pruritus generalised [Unknown]
  - Rash [Unknown]
  - Headache [Unknown]
  - Haematochezia [Unknown]
  - Respiratory disorder [Unknown]
  - Drug hypersensitivity [Unknown]
  - Thermal burn [Unknown]
  - Abdominal pain upper [Unknown]
  - Skin reaction [Unknown]
  - Abasia [Unknown]
  - Hypoaesthesia [Unknown]
